FAERS Safety Report 24149449 (Version 1)
Quarter: 2024Q3

REPORT INFORMATION
  Report Type: Spontaneous
  Country: JP (occurrence: JP)
  Receive Date: 20240730
  Receipt Date: 20240730
  Transmission Date: 20241017
  Serious: Yes (Other)
  Sender: STRIDES
  Company Number: JP-STRIDES ARCOLAB LIMITED-2024SP009274

PATIENT
  Age: 10 Year
  Sex: Female

DRUGS (3)
  1. COLCHICINE [Suspect]
     Active Substance: COLCHICINE
     Indication: PFAPA syndrome
     Dosage: 1 MILLIGRAM, QD
     Route: 048
  2. COLCHICINE [Suspect]
     Active Substance: COLCHICINE
     Dosage: UNK, RESTARTED
     Route: 065
  3. COLCHICINE [Suspect]
     Active Substance: COLCHICINE
     Dosage: UNK, TAPERED
     Route: 065

REACTIONS (5)
  - Relapsing fever [Recovered/Resolved]
  - Rebound effect [Recovered/Resolved]
  - Mouth ulceration [Recovered/Resolved]
  - Genital ulceration [Recovered/Resolved]
  - Off label use [Unknown]
